FAERS Safety Report 7635217-6 (Version None)
Quarter: 2011Q3

REPORT INFORMATION
  Report Type: 
  Country: None (occurrence: None)
  Receive Date: 20110726
  Receipt Date: 20091109
  Transmission Date: 20111222
  Serious: Yes (Other)
  Sender: FDA-Public Use
  Company Number: US-BAYER-200938887NA

PATIENT
  Age: 54 Year
  Sex: Male
  Weight: 125 kg

DRUGS (24)
  1. ACETYLSALICYLIC ACID SRT [Concomitant]
     Dosage: 81 MG, QD
     Route: 048
  2. PREDNISONE [Concomitant]
     Route: 048
  3. VICODIN [Concomitant]
     Dosage: 5-500MG/TABLET, AS NEEDED
     Route: 048
  4. NIPRIDE [Concomitant]
     Dosage: UNK
     Route: 042
     Dates: start: 20071101
  5. HYDROCHLOROTHIAZIDE [Concomitant]
     Route: 048
  6. CELEBREX [Concomitant]
     Dosage: 200 MG, QD
     Route: 048
  7. MANNITOL [Concomitant]
     Dosage: 25 G, UNK
     Route: 042
     Dates: start: 20071101, end: 20071101
  8. HEPARIN [Concomitant]
     Dosage: 15000 U, UNK
     Route: 042
     Dates: start: 20071101, end: 20071101
  9. NORVASC [Concomitant]
     Dosage: 10 MG, QD
     Route: 048
  10. PERCOCET [Concomitant]
     Dosage: 5-325MG/ONE TABLET EVERY 6 HOURS AS NEEDED
     Route: 048
  11. PROPOFOL [Concomitant]
     Dosage: 25MCG/KG/MINUTE
     Route: 042
     Dates: start: 20071101
  12. PLAVIX [Concomitant]
     Dosage: 75 MG, QD
     Route: 048
  13. LOPRESSOR [Concomitant]
     Route: 048
  14. ZOCOR [Concomitant]
     Route: 048
  15. TRASYLOL [Suspect]
     Indication: PRODUCT USED FOR UNKNOWN INDICATION
     Dosage: 200CC THEN 50 ML HOUR BOLUS
     Route: 042
     Dates: start: 20071101
  16. CIPROFLOXACIN [Concomitant]
     Route: 048
  17. VANCOMYCIN [Concomitant]
     Dosage: UNK
     Route: 048
     Dates: start: 20070101
  18. VALIUM [Concomitant]
     Dosage: 5 MG, AS NEEDED
     Route: 048
  19. METOPROLOL TARTRATE [Concomitant]
     Dosage: 50 MG, BID
     Route: 048
     Dates: start: 20070101
  20. PRINIVIL [Concomitant]
     Route: 048
  21. LIDOCAINE [Concomitant]
     Dosage: 2MG/MINUTE
     Route: 042
     Dates: start: 20071101, end: 20071101
  22. TRASYLOL [Suspect]
     Dosage: 200ML PUMP PRIME DOSE
     Dates: start: 20071101
  23. LISINOPRIL [Concomitant]
     Dosage: 20 MG, BID
     Route: 048
     Dates: start: 20000101
  24. SIMVASTATIN [Concomitant]
     Dosage: 20 MG, QD
     Route: 048

REACTIONS (11)
  - UNEVALUABLE EVENT [None]
  - EMOTIONAL DISTRESS [None]
  - RENAL IMPAIRMENT [None]
  - INJURY [None]
  - RENAL FAILURE [None]
  - ANHEDONIA [None]
  - RENAL INJURY [None]
  - STRESS [None]
  - FEAR [None]
  - PAIN [None]
  - ANXIETY [None]
